FAERS Safety Report 9195278 (Version 1)
Quarter: 2013Q1

REPORT INFORMATION
  Report Type: Spontaneous
  Country: US (occurrence: US)
  Receive Date: 20130328
  Receipt Date: 20130328
  Transmission Date: 20140127
  Serious: No
  Sender: FDA-Public Use
  Company Number: US-ALLERGAN-1300686US

PATIENT
  Age: 56 Year
  Sex: Female

DRUGS (6)
  1. LATISSE 0.03% [Suspect]
     Indication: GROWTH OF EYELASHES
     Dosage: 2 GTT, UNK
     Route: 061
     Dates: start: 201212
  2. LATISSE 0.03% [Suspect]
     Dosage: 2 GTT, QHS
     Route: 061
     Dates: start: 2012, end: 201212
  3. LATISSE 0.03% [Suspect]
     Dosage: UNK
     Route: 061
     Dates: start: 201108
  4. METOPROLOL [Concomitant]
     Indication: BLOOD PRESSURE FLUCTUATION
     Dosage: UNK UNK, QD
     Route: 048
     Dates: start: 201208
  5. HEADACHE MEDICATION NOS [Concomitant]
     Indication: HEADACHE
  6. BIOTRUE [Concomitant]
     Indication: CONTACT LENS THERAPY
     Dosage: UNK, PRN
     Route: 047

REACTIONS (5)
  - Wrong technique in drug usage process [Unknown]
  - Blepharal pigmentation [Unknown]
  - Therapeutic response decreased [Not Recovered/Not Resolved]
  - Seborrhoea [Unknown]
  - Hair texture abnormal [Unknown]
